FAERS Safety Report 4634148-3 (Version None)
Quarter: 2005Q2

REPORT INFORMATION
  Report Type: 
  Country: None (occurrence: None)
  Receive Date: 20050413
  Receipt Date: 20050118
  Transmission Date: 20051028
  Serious: Yes (Life-Threatening)
  Sender: FDA-Public Use
  Company Number: JP-JNJFOC-20041106817

PATIENT
  Sex: Male

DRUGS (13)
  1. HALOPERIDOL DECANOATE [Suspect]
     Indication: SCHIZOPHRENIA
     Route: 030
  2. HALOPERIDOL [Suspect]
     Indication: SCHIZOPHRENIA
     Route: 030
  3. HALOPERIDOL [Suspect]
     Route: 049
  4. HALOPERIDOL [Suspect]
     Route: 049
  5. BIPERIDEN LACTATE [Suspect]
     Indication: SCHIZOPHRENIA
     Route: 030
  6. LEVOMEPROMAZINE HYDROCHLORIDE [Suspect]
     Indication: SCHIZOPHRENIA
     Route: 030
  7. PROMETHAZINE HCL [Suspect]
     Indication: SCHIZOPHRENIA
     Route: 030
  8. BIPERIDEN HYDROCHLORIDE TAB [Concomitant]
     Indication: SCHIZOPHRENIA
     Route: 049
  9. CARBAMAZEPINE [Concomitant]
     Indication: INSOMNIA
     Route: 049
  10. FLUNITRAZEPAM [Concomitant]
     Indication: INSOMNIA
     Route: 049
  11. NITRAZEPAM [Concomitant]
     Indication: INSOMNIA
     Route: 049
  12. BROTIZOLAM [Concomitant]
     Indication: INSOMNIA
     Route: 049
  13. TRIAZOLAM [Concomitant]
     Indication: INSOMNIA
     Route: 049

REACTIONS (8)
  - CARDIO-RESPIRATORY ARREST [None]
  - DEEP VEIN THROMBOSIS [None]
  - DEHYDRATION [None]
  - DISSEMINATED INTRAVASCULAR COAGULATION [None]
  - ELECTROLYTE IMBALANCE [None]
  - NEUROLEPTIC MALIGNANT SYNDROME [None]
  - PNEUMONIA [None]
  - PULMONARY INFARCTION [None]
